FAERS Safety Report 6266796-1 (Version None)
Quarter: 2009Q3

REPORT INFORMATION
  Report Type: 
  Country: None (occurrence: None)
  Receive Date: 20090709
  Receipt Date: 20090709
  Transmission Date: 20100115
  Serious: No
  Sender: FDA-Public Use
  Company Number: None

PATIENT
  Sex: Female
  Weight: 97.5234 kg

DRUGS (2)
  1. DIOVAN [Suspect]
     Indication: HYPERTENSION
     Dosage: 80 MG 1X DAILY ORAL
     Route: 048
     Dates: start: 20090210, end: 20090505
  2. BENICAR HCT [Suspect]
     Dosage: 40/25 1X DAILY ORAL
     Route: 048
     Dates: start: 20090611, end: 20090624

REACTIONS (9)
  - CARDIAC FAILURE CONGESTIVE [None]
  - CHEST PAIN [None]
  - DIZZINESS [None]
  - HEADACHE [None]
  - HEART RATE INCREASED [None]
  - OEDEMA PERIPHERAL [None]
  - PAIN IN EXTREMITY [None]
  - THROAT TIGHTNESS [None]
  - URINE OUTPUT DECREASED [None]
